FAERS Safety Report 7594138-8 (Version None)
Quarter: 2011Q3

REPORT INFORMATION
  Report Type: 
  Country: None (occurrence: None)
  Receive Date: 20110706
  Receipt Date: 20110704
  Transmission Date: 20111222
  Serious: Yes (Life-Threatening, Hospitalization, Other)
  Sender: FDA-Public Use
  Company Number: JP-ABBOTT-11P-087-0726387-00

PATIENT
  Sex: Female

DRUGS (7)
  1. HUMIRA [Suspect]
     Dates: start: 20110425, end: 20110425
  2. METHOTREXATE [Suspect]
     Indication: PRODUCT USED FOR UNKNOWN INDICATION
     Route: 048
     Dates: start: 20100621, end: 20110512
  3. DICLOFENAC SODIUM [Concomitant]
     Indication: RHEUMATOID ARTHRITIS
     Route: 054
     Dates: start: 20100621
  4. LANSOPRAZOLE [Concomitant]
     Indication: GASTROOESOPHAGEAL REFLUX DISEASE
     Route: 048
     Dates: start: 20100621
  5. HUMIRA [Suspect]
     Dates: start: 20110411, end: 20110411
  6. BROTIZOLAM [Concomitant]
     Indication: INSOMNIA
     Dates: start: 20100621
  7. HUMIRA [Suspect]
     Indication: RHEUMATOID ARTHRITIS
     Route: 058
     Dates: start: 20110331, end: 20110331

REACTIONS (4)
  - BACTERAEMIA [None]
  - PANCYTOPENIA [None]
  - ACCIDENTAL OVERDOSE [None]
  - C-REACTIVE PROTEIN INCREASED [None]
